FAERS Safety Report 6920825-8 (Version None)
Quarter: 2010Q3

REPORT INFORMATION
  Report Type: 
  Country: None (occurrence: None)
  Receive Date: 20100812
  Receipt Date: 20100804
  Transmission Date: 20110219
  Serious: Yes (Death, Congenital Anomaly)
  Sender: FDA-Public Use
  Company Number: PHHY2010FR52415

PATIENT

DRUGS (2)
  1. NEORAL [Suspect]
     Dosage: MATERNAL DOSE: 130 MG DAILY
     Route: 064
  2. NEORAL [Suspect]
     Dosage: MATERNAL DOSE: 140 MG DAILY
     Route: 064

REACTIONS (3)
  - ABORTION SPONTANEOUS [None]
  - DRUG EXPOSURE DURING PREGNANCY [None]
  - FOETAL MALFORMATION [None]
